FAERS Safety Report 18497860 (Version 1)
Quarter: 2020Q4

REPORT INFORMATION
  Report Type: Spontaneous
  Country: US (occurrence: US)
  Receive Date: 20201112
  Receipt Date: 20201112
  Transmission Date: 20210114
  Serious: No
  Sender: FDA-Public Use
  Company Number: US-THERAPEUTICSMD-2020TMD03812

PATIENT
  Sex: Female

DRUGS (2)
  1. BIJUVA [Suspect]
     Active Substance: ESTRADIOL\PROGESTERONE
     Dosage: UNK
  2. BIJUVA [Suspect]
     Active Substance: ESTRADIOL\PROGESTERONE
     Dosage: UNK
     Route: 067

REACTIONS (2)
  - Incorrect route of product administration [Unknown]
  - Vulvovaginal burning sensation [Unknown]
